FAERS Safety Report 5325934-5 (Version None)
Quarter: 2007Q2

REPORT INFORMATION
  Report Type: 
  Country: None (occurrence: None)
  Receive Date: 20070516
  Receipt Date: 20070510
  Transmission Date: 20071010
  Serious: Yes (Other)
  Sender: FDA-Public Use
  Company Number: PHEH2007US06401

PATIENT
  Age: 60 Year
  Sex: Female
  Weight: 98.412 kg

DRUGS (12)
  1. ZELNORM [Suspect]
     Indication: IRRITABLE BOWEL SYNDROME
     Dosage: 6 MG, BID
     Route: 048
     Dates: start: 20060628, end: 20070501
  2. ZELNORM [Suspect]
     Dosage: UNK, UNK
     Route: 048
     Dates: start: 20020101, end: 20030101
  3. PLAVIX [Concomitant]
     Dates: start: 20060601
  4. TOPROL-XL [Concomitant]
     Dosage: 50 MG, UNK
     Dates: start: 20060601
  5. ULTRAM [Concomitant]
     Dosage: 50 MG, UNK
     Dates: start: 20060601
  6. MAXZIDE [Concomitant]
     Dates: start: 20060601
  7. ASPIRIN [Concomitant]
     Dosage: 325 MG, UNK
     Dates: start: 20060601
  8. PRILOSEC [Concomitant]
     Dosage: 20 MG, UNK
     Dates: start: 20060601
  9. ZOCOR [Concomitant]
     Dosage: 20 MG, UNK
     Dates: start: 20060601
  10. SYNTHROID [Concomitant]
     Dates: start: 20060601
  11. TRAZODONE HCL [Concomitant]
     Dates: start: 20060601
  12. NITROGLYCERIN [Concomitant]
     Dosage: 0.4 MG, UNK

REACTIONS (2)
  - CARDIAC DISORDER [None]
  - ECHOCARDIOGRAM ABNORMAL [None]
